FAERS Safety Report 6522519-X (Version None)
Quarter: 2009Q4

REPORT INFORMATION
  Report Type: 
  Country: None (occurrence: None)
  Receive Date: 20091229
  Receipt Date: 20091229
  Transmission Date: 20100525
  Serious: Yes (Life-Threatening, Hospitalization)
  Sender: FDA-Public Use
  Company Number: None

PATIENT
  Age: 61 Year
  Sex: Male
  Weight: 67.1324 kg

DRUGS (1)
  1. MORPHINE SULFATE [Suspect]
     Indication: PAIN
     Dosage: 1 TABLET EVERY 8 HOURS
     Dates: start: 20090223, end: 20090224

REACTIONS (1)
  - MALAISE [None]
